FAERS Safety Report 8512299-0 (Version None)
Quarter: 2012Q3

REPORT INFORMATION
  Report Type: 
  Country: None (occurrence: None)
  Receive Date: 20120716
  Receipt Date: 20120705
  Transmission Date: 20120928
  Serious: Yes (Hospitalization)
  Sender: FDA-Public Use
  Company Number: US-ACTELION-A-US2012-68296

PATIENT

DRUGS (3)
  1. COUMADIN [Suspect]
  2. TRACLEER [Suspect]
     Indication: PULMONARY ARTERIAL HYPERTENSION
     Dosage: UNK
     Route: 048
  3. CALCIUM CHANNEL BLOCKERS [Concomitant]

REACTIONS (1)
  - DRUG LEVEL INCREASED [None]
